FAERS Safety Report 4307823-8 (Version None)
Quarter: 2004Q1

REPORT INFORMATION
  Report Type: 
  Country: None (occurrence: None)
  Receive Date: 20040226
  Receipt Date: 20030123
  Transmission Date: 20041129
  Serious: Yes (Hospitalization)
  Sender: FDA-Public Use
  Company Number: 2003143671US

PATIENT
  Sex: Male

DRUGS (2)
  1. CELEBREX [Suspect]
     Indication: PAIN
     Dosage: 200 MG, BID
     Dates: start: 20000201, end: 20000201
  2. CELEBREX [Suspect]
     Indication: PAIN
     Dosage: 200 MG, BID
     Dates: start: 20021201

REACTIONS (3)
  - FATIGUE [None]
  - NEPHROLITHIASIS [None]
  - WEIGHT INCREASED [None]
